FAERS Safety Report 5199854-3 (Version None)
Quarter: 2007Q1

REPORT INFORMATION
  Report Type: 
  Country: None (occurrence: None)
  Receive Date: 20070103
  Receipt Date: 20070103
  Transmission Date: 20070707
  Serious: No
  Sender: FDA-Public Use
  Company Number: None

PATIENT
  Sex: Female
  Weight: 68 kg

DRUGS (1)
  1. LARIAM [Suspect]
     Indication: MALARIA PROPHYLAXIS
     Dates: start: 19940320, end: 19940415

REACTIONS (6)
  - ASTHENIA [None]
  - DEPRESSION [None]
  - FATIGUE [None]
  - HYPOTHYROIDISM [None]
  - LETHARGY [None]
  - MENTAL DISORDER [None]
